FAERS Safety Report 19407581 (Version 3)
Quarter: 2021Q3

REPORT INFORMATION
  Report Type: Report from Study
  Country: US (occurrence: US)
  Receive Date: 20210611
  Receipt Date: 20210726
  Transmission Date: 20211014
  Serious: Yes (Death, Hospitalization)
  Sender: FDA-Public Use
  Company Number: US-BAYER-2021-139747

PATIENT
  Age: 71 Year
  Sex: Male

DRUGS (7)
  1. ACETAMINOPHEN. [Concomitant]
     Active Substance: ACETAMINOPHEN
  2. DOXAZOSIN [Concomitant]
     Active Substance: DOXAZOSIN MESYLATE
  3. STIVARGA [Suspect]
     Active Substance: REGORAFENIB
     Indication: METASTASES TO RETROPERITONEUM
     Dosage: 160 MG DAILY FOR 3 WEEKS
     Route: 048
     Dates: end: 20210621
  4. STIVARGA [Suspect]
     Active Substance: REGORAFENIB
     Indication: METASTASES TO RETROPERITONEUM
     Dosage: 80 MG DAILY FOR 2 WEEK
     Route: 048
     Dates: start: 20210506
  5. ARIPIPRAZOLE. [Concomitant]
     Active Substance: ARIPIPRAZOLE
  6. DIPHENHYDRAMINE. [Concomitant]
     Active Substance: DIPHENHYDRAMINE
  7. DEXAMETHASONE. [Concomitant]
     Active Substance: DEXAMETHASONE

REACTIONS (8)
  - Erythema [None]
  - Colon cancer stage IV [Fatal]
  - Odynophagia [Not Recovered/Not Resolved]
  - Cancer pain [Not Recovered/Not Resolved]
  - Oropharyngeal pain [Not Recovered/Not Resolved]
  - Off label use [None]
  - Oral mucosal exfoliation [Not Recovered/Not Resolved]
  - Pain in extremity [None]

NARRATIVE: CASE EVENT DATE: 20210509
